FAERS Safety Report 23581752 (Version 2)
Quarter: 2024Q1

REPORT INFORMATION
  Report Type: Report from Study
  Country: DE (occurrence: DE)
  Receive Date: 20240229
  Receipt Date: 20240306
  Transmission Date: 20240410
  Serious: Yes (Hospitalization, Other)
  Sender: FDA-Public Use
  Company Number: DE-PFM-2024-01278

PATIENT
  Age: 70 Year
  Sex: Female

DRUGS (17)
  1. ENCORAFENIB [Suspect]
     Active Substance: ENCORAFENIB
     Indication: Malignant melanoma
     Dosage: 450 MG, QD (1/DAY)
     Route: 048
     Dates: start: 20231112, end: 20231114
  2. ENCORAFENIB [Suspect]
     Active Substance: ENCORAFENIB
     Dosage: 450 MG, QD (1/DAY)
     Route: 048
     Dates: start: 20231118, end: 20231123
  3. ENCORAFENIB [Suspect]
     Active Substance: ENCORAFENIB
     Dosage: 450 MG, QD (1/DAY)
     Route: 048
     Dates: start: 20231125, end: 20231204
  4. BINIMETINIB [Suspect]
     Active Substance: BINIMETINIB
     Indication: Malignant melanoma
     Dosage: 45 MG, BID (2/DAY)
     Route: 048
     Dates: start: 20231112, end: 20231114
  5. BINIMETINIB [Suspect]
     Active Substance: BINIMETINIB
     Dosage: 45 MG, BID (2/DAY)
     Route: 048
     Dates: start: 20231118, end: 20231123
  6. BINIMETINIB [Suspect]
     Active Substance: BINIMETINIB
     Dosage: 45 MG, BID (2/DAY)
     Route: 048
     Dates: start: 20231125, end: 20231204
  7. LEVOTHYROXINE SODIUM [Concomitant]
     Active Substance: LEVOTHYROXINE SODIUM
     Indication: Prophylaxis
     Dosage: UNK
     Route: 065
  8. PREDNISOLONE [Concomitant]
     Active Substance: PREDNISOLONE
     Indication: Rheumatoid arthritis
     Dosage: UNK
     Route: 065
     Dates: start: 20231125
  9. PANTOPRAZOLE [Concomitant]
     Active Substance: PANTOPRAZOLE
     Indication: Diarrhoea
     Dosage: 40 MG, 1-0-1 4 WEEKS, 40 MG 1-0-0 4 WEEKS; THEN TAPER OFF
     Route: 065
     Dates: start: 20231114
  10. PANTOPRAZOLE [Concomitant]
     Active Substance: PANTOPRAZOLE
     Indication: Nausea
  11. PROPRANOLOL [Concomitant]
     Active Substance: PROPRANOLOL HYDROCHLORIDE
     Indication: Diarrhoea
     Dosage: 10 MG 1-1-1
     Route: 065
     Dates: start: 20231114
  12. PROPRANOLOL [Concomitant]
     Active Substance: PROPRANOLOL HYDROCHLORIDE
     Indication: Nausea
  13. PANCRELIPASE [Concomitant]
     Active Substance: PANCRELIPASE
     Indication: Diarrhoea
     Dosage: 10,000 I.U. 1-1-1 WITH MEALS
     Route: 065
     Dates: start: 20231114
  14. PANCRELIPASE [Concomitant]
     Active Substance: PANCRELIPASE
     Indication: Nausea
  15. IBUPROFEN [Concomitant]
     Active Substance: IBUPROFEN
     Indication: Diarrhoea
     Dosage: UNK
     Route: 065
     Dates: start: 20231114
  16. IBUPROFEN [Concomitant]
     Active Substance: IBUPROFEN
     Indication: Nausea
  17. IBUPROFEN [Concomitant]
     Active Substance: IBUPROFEN
     Indication: Rheumatoid arthritis

REACTIONS (2)
  - Rheumatoid arthritis [Recovering/Resolving]
  - General physical health deterioration [Recovered/Resolved]

NARRATIVE: CASE EVENT DATE: 20231205
